FAERS Safety Report 15742251 (Version 2)
Quarter: 2018Q4

REPORT INFORMATION
  Report Type: Spontaneous
  Country: US (occurrence: US)
  Receive Date: 20181219
  Receipt Date: 20181220
  Transmission Date: 20190205
  Serious: Yes (Hospitalization, Other)
  Sender: FDA-Public Use
  Company Number: US-SAKK-2018SA343083AA

PATIENT
  Age: 49 Year
  Sex: Female

DRUGS (2)
  1. LEMTRADA [Suspect]
     Active Substance: ALEMTUZUMAB
     Dosage: UNK
     Route: 041
  2. LEMTRADA [Suspect]
     Active Substance: ALEMTUZUMAB
     Dosage: UNK
     Route: 041

REACTIONS (7)
  - Cough [Unknown]
  - Condition aggravated [Unknown]
  - Staphylococcal infection [Unknown]
  - Wheezing [Unknown]
  - Blood pressure abnormal [Unknown]
  - Dyspnoea [Unknown]
  - Oropharyngeal pain [Unknown]
